FAERS Safety Report 19031768 (Version 1)
Quarter: 2021Q1

REPORT INFORMATION
  Report Type: Spontaneous
  Country: FR (occurrence: FR)
  Receive Date: 20210319
  Receipt Date: 20210319
  Transmission Date: 20210420
  Serious: Yes (Other)
  Sender: FDA-Public Use
  Company Number: FR-SA-2021SA092847

PATIENT
  Age: 23 Year
  Sex: Female
  Weight: 78 kg

DRUGS (2)
  1. CLOMID [Suspect]
     Active Substance: CLOMIPHENE CITRATE
     Indication: CONTROLLED OVARIAN STIMULATION
     Dosage: 1 DF, QD
     Route: 048
     Dates: start: 20210113, end: 20210117
  2. DUPHASTON [Concomitant]
     Active Substance: DYDROGESTERONE

REACTIONS (2)
  - Uveitis [Recovered/Resolved]
  - Retinal detachment [Recovered/Resolved]

NARRATIVE: CASE EVENT DATE: 20210118
